FAERS Safety Report 22367642 (Version 2)
Quarter: 2023Q4

REPORT INFORMATION
  Report Type: Report from Study
  Country: BR (occurrence: BR)
  Receive Date: 20230525
  Receipt Date: 20231111
  Transmission Date: 20240110
  Serious: Yes (Hospitalization)
  Sender: FDA-Public Use
  Company Number: BR-JNJFOC-20230552513

PATIENT
  Age: 47 Year
  Sex: Male
  Weight: 87 kg

DRUGS (2)
  1. REMICADE [Suspect]
     Active Substance: INFLIXIMAB
     Indication: Crohn^s disease
     Dosage: REPORTED AS USING 400 MG CORRESPONDING TO 4 VIALS.
     Route: 041
     Dates: start: 20210727
  2. INFLIXIMAB [Suspect]
     Active Substance: INFLIXIMAB
     Indication: Crohn^s disease
     Route: 042
     Dates: start: 20221101

REACTIONS (2)
  - Tuberculosis [Recovering/Resolving]
  - Urinary tract infection [Recovering/Resolving]
